FAERS Safety Report 5044886-9 (Version None)
Quarter: 2006Q3

REPORT INFORMATION
  Report Type: 
  Country: None (occurrence: None)
  Receive Date: 20060705
  Receipt Date: 20060627
  Transmission Date: 20061208
  Serious: Yes (Hospitalization)
  Sender: FDA-Public Use
  Company Number: 2006-06-2047

PATIENT
  Age: 49 Year
  Sex: Female

DRUGS (7)
  1. PEG-INTRON [Suspect]
     Indication: HEPATITIS C
     Dosage: SUBCUTANEOUS
     Route: 058
     Dates: start: 20060428
  2. RIBAVIRIN [Suspect]
     Indication: HEPATITIS C
     Dates: start: 20060428
  3. CITRUCEL [Concomitant]
  4. DIPHENHYDRAMINE HYDROCHLORIDE TABLETS [Concomitant]
  5. FLUOXETINE HYDROCHLORIDE CAPSULES [Concomitant]
  6. MULTIVITAMIN [Concomitant]
  7. TRAZODONE HYDROCHLORIDE TABLETS [Concomitant]

REACTIONS (4)
  - BLOOD POTASSIUM DECREASED [None]
  - BLOOD SODIUM DECREASED [None]
  - DEPRESSION [None]
  - MIGRAINE [None]
